FAERS Safety Report 6465100-3 (Version None)
Quarter: 2009Q4

REPORT INFORMATION
  Report Type: 
  Country: None (occurrence: None)
  Receive Date: 20091201
  Receipt Date: 20090427
  Transmission Date: 20100525
  Serious: No
  Sender: FDA-Public Use
  Company Number: US-AMGEN-COG338640

PATIENT
  Sex: Female
  Weight: 90.8 kg

DRUGS (3)
  1. ENBREL [Suspect]
     Indication: RHEUMATOID ARTHRITIS
     Route: 058
     Dates: start: 20081101
  2. METHOTREXATE [Concomitant]
     Route: 048
     Dates: start: 20050324, end: 20090304
  3. NAPROSYN [Concomitant]

REACTIONS (4)
  - ALANINE AMINOTRANSFERASE INCREASED [None]
  - BLOOD POTASSIUM DECREASED [None]
  - CONTUSION [None]
  - ULCER [None]
